FAERS Safety Report 14228621 (Version 1)
Quarter: 2017Q4

REPORT INFORMATION
  Report Type: Spontaneous
  Country: US (occurrence: US)
  Receive Date: 20171128
  Receipt Date: 20171128
  Transmission Date: 20180321
  Serious: No
  Sender: FDA-Public Use
  Company Number: PHEH2017US038149

PATIENT
  Age: 37 Year
  Sex: Male

DRUGS (1)
  1. COSENTYX [Suspect]
     Active Substance: SECUKINUMAB
     Indication: PSORIASIS
     Dosage: 300 MG, QMO
     Route: 058
     Dates: start: 20170401

REACTIONS (6)
  - Lymph gland infection [Recovering/Resolving]
  - Psoriasis [Unknown]
  - Inappropriate schedule of drug administration [Unknown]
  - Skin exfoliation [Unknown]
  - Pustular psoriasis [Unknown]
  - Rash erythematous [Unknown]

NARRATIVE: CASE EVENT DATE: 20170915
